FAERS Safety Report 6756307-6 (Version None)
Quarter: 2010Q2

REPORT INFORMATION
  Report Type: 
  Country: None (occurrence: None)
  Receive Date: 20100604
  Receipt Date: 20100526
  Transmission Date: 20101027
  Serious: Yes (Death)
  Sender: FDA-Public Use
  Company Number: FR-ROCHE-700060

PATIENT
  Sex: Male
  Weight: 74 kg

DRUGS (7)
  1. BEVACIZUMAB [Suspect]
     Dosage: FORM:INFUSION
     Route: 042
     Dates: start: 20081013, end: 20090420
  2. CAPECITABINE [Suspect]
     Route: 065
     Dates: start: 20080516, end: 20080718
  3. OXALIPLATIN [Suspect]
     Route: 042
     Dates: start: 20080516, end: 20080718
  4. FOLFIRI REGIMEN [Suspect]
     Route: 042
     Dates: start: 20081013, end: 20090420
  5. CETUXIMAB [Suspect]
     Route: 042
     Dates: start: 20090806, end: 20090917
  6. IRINOTECAN [Suspect]
     Route: 042
     Dates: start: 20090806, end: 20090910
  7. PAZOPANIB [Suspect]
     Route: 048
     Dates: start: 20090807, end: 20090924

REACTIONS (3)
  - GASTROINTESTINAL FISTULA [None]
  - PELVIC SEPSIS [None]
  - PERINEAL INFECTION [None]
